FAERS Safety Report 10901051 (Version 4)
Quarter: 2015Q2

REPORT INFORMATION
  Report Type: Spontaneous
  Country: BR (occurrence: BR)
  Receive Date: 20150310
  Receipt Date: 20150526
  Transmission Date: 20150821
  Serious: Yes (Hospitalization)
  Sender: FDA-Public Use
  Company Number: BR-PFIZER INC-2014131596

PATIENT
  Age: 44 Year
  Sex: Female

DRUGS (16)
  1. SYNTHROID [Concomitant]
     Active Substance: LEVOTHYROXINE SODIUM
     Indication: HYPOTHYROIDISM
     Dosage: UNK
     Dates: start: 1995
  2. FRONTAL XR [Suspect]
     Active Substance: ALPRAZOLAM
     Indication: ANXIETY
  3. LYRICA [Suspect]
     Active Substance: PREGABALIN
     Indication: PAIN
     Dosage: 75 MG, 2X/DAY (ONE TABLET IN THE MORNING AND OTHER AT NIGHT)
     Route: 048
     Dates: start: 2015
  4. CENTRUM MULHER [Suspect]
     Active Substance: VITAMINS
     Indication: SUPPLEMENTATION THERAPY
     Dosage: 1 TABLET (UNSPECIFIED DOSE), DAILY
     Route: 048
     Dates: start: 201502
  5. LYRICA [Suspect]
     Active Substance: PREGABALIN
     Indication: NERVOUS SYSTEM DISORDER
     Dosage: 150MG IN THE DAY AND 75MG AT NIGHT, 2X/DAY
     Route: 048
     Dates: start: 20150129, end: 2015
  6. CENTRUM MULHER [Suspect]
     Active Substance: VITAMINS
     Indication: ASTHENIA
  7. FRONTAL XR [Suspect]
     Active Substance: ALPRAZOLAM
     Indication: DEPRESSION
     Dosage: 2 TABLETS OF 2MG (4MG) DAILY
     Route: 048
     Dates: start: 20140508, end: 201406
  8. ALPRAZOLAM. [Suspect]
     Active Substance: ALPRAZOLAM
     Indication: ANXIETY
     Dosage: HALF OF A TABLET (STRENGTH 2MG), IN THE AFTERNOON
     Route: 048
  9. PANTOPRAZOLE [Concomitant]
     Active Substance: PANTOPRAZOLE SODIUM
     Dosage: UNK
     Dates: start: 2010
  10. LYRICA [Suspect]
     Active Substance: PREGABALIN
     Indication: SPINAL PAIN
     Dosage: 75 MG, 2X/DAY
     Route: 048
     Dates: start: 2011
  11. LYRICA [Suspect]
     Active Substance: PREGABALIN
     Indication: FIBROMYALGIA
     Dosage: 150 MG, 1X/DAY AT NIGHT
     Route: 048
  12. LYRICA [Suspect]
     Active Substance: PREGABALIN
     Indication: BACK PAIN
  13. ALPRAZOLAM. [Suspect]
     Active Substance: ALPRAZOLAM
     Indication: DEPRESSION
     Dosage: 2 TABLETS OF 2MG (4 MG), DAILY
     Route: 048
  14. FRONTAL [Suspect]
     Active Substance: ALPRAZOLAM
     Indication: DEPRESSION
  15. ALPRAZOLAM. [Suspect]
     Active Substance: ALPRAZOLAM
     Dosage: ONE TABLET IN THE MORNING AND ANOTHER ONE AT NIGHT
     Route: 048
  16. FRONTAL [Suspect]
     Active Substance: ALPRAZOLAM
     Indication: ANXIETY
     Dosage: 2 TABLETS (4 MG), DAILY
     Dates: start: 2007

REACTIONS (12)
  - Intervertebral disc protrusion [Recovered/Resolved]
  - Chest pain [Not Recovered/Not Resolved]
  - Fibrosis [Recovered/Resolved]
  - Feeling abnormal [Recovered/Resolved]
  - Arthralgia [Not Recovered/Not Resolved]
  - Somnolence [Recovered/Resolved]
  - Drug ineffective [Not Recovered/Not Resolved]
  - Nausea [Recovered/Resolved]
  - Decreased appetite [Not Recovered/Not Resolved]
  - Headache [Recovered/Resolved]
  - Heart rate increased [Recovered/Resolved]
  - Increased appetite [Recovered/Resolved]

NARRATIVE: CASE EVENT DATE: 2010
